FAERS Safety Report 5137458-9 (Version None)
Quarter: 2006Q4

REPORT INFORMATION
  Report Type: 
  Country: None (occurrence: None)
  Receive Date: 20061030
  Receipt Date: 20061016
  Transmission Date: 20070319
  Serious: Yes (Life-Threatening, Hospitalization)
  Sender: FDA-Public Use
  Company Number: US-JNJFOC-20061005221

PATIENT
  Age: 58 Year
  Sex: Female
  Weight: 74.84 kg

DRUGS (7)
  1. FENTANYL [Suspect]
     Indication: INTENTIONAL OVERDOSE
     Route: 048
  2. AMITRIPTYLINE HCL [Suspect]
     Indication: INTENTIONAL OVERDOSE
     Route: 048
  3. ACETAMINOPHEN W/ PROPOXYPHENE HCL [Suspect]
     Indication: INTENTIONAL OVERDOSE
     Route: 048
  4. MAXZIDE [Suspect]
     Indication: INTENTIONAL OVERDOSE
     Route: 048
  5. PREDNISONE TAB [Suspect]
     Indication: INTENTIONAL OVERDOSE
     Route: 048
  6. AMOXICILLIN [Suspect]
     Indication: INTENTIONAL OVERDOSE
     Route: 048
  7. THYROID PREPARATIONS [Concomitant]
     Route: 048

REACTIONS (3)
  - CARDIAC ARREST [None]
  - COMA [None]
  - MULTIPLE DRUG OVERDOSE [None]
